FAERS Safety Report 14847122 (Version 2)
Quarter: 2018Q2

REPORT INFORMATION
  Report Type: Spontaneous
  Country: PT (occurrence: PT)
  Receive Date: 20180504
  Receipt Date: 20180608
  Transmission Date: 20180711
  Serious: Yes (Hospitalization, Other)
  Sender: FDA-Public Use
  Company Number: PT-WEST-WARD PHARMACEUTICALS CORP.-PT-H14001-18-03633

PATIENT
  Age: 57 Year
  Sex: Male

DRUGS (11)
  1. METOCLOPRAMIDE. [Suspect]
     Active Substance: METOCLOPRAMIDE
     Indication: PRODUCT USED FOR UNKNOWN INDICATION
     Dosage: 10 MG, UNK
     Route: 065
  2. PARACETAMOL [Suspect]
     Active Substance: ACETAMINOPHEN
     Indication: PRODUCT USED FOR UNKNOWN INDICATION
     Dosage: 1000 MG
     Route: 065
  3. ROCURONIUM [Suspect]
     Active Substance: ROCURONIUM BROMIDE
     Indication: ANAESTHESIA
     Dosage: 50 MG
     Route: 065
  4. DROPERIDOL. [Suspect]
     Active Substance: DROPERIDOL
     Indication: PRODUCT USED FOR UNKNOWN INDICATION
     Dosage: 1.25 MG, Z
     Route: 065
  5. SUGAMMADEX [Suspect]
     Active Substance: SUGAMMADEX
     Indication: PRODUCT USED FOR UNKNOWN INDICATION
     Dosage: 200 MG, UNK
     Route: 065
  6. PROPOFOL. [Suspect]
     Active Substance: PROPOFOL
     Indication: ANAESTHESIA
     Dosage: 200 MG, UNK
     Route: 042
  7. MIDAZOLAM [Suspect]
     Active Substance: MIDAZOLAM HYDROCHLORIDE
     Indication: PRODUCT USED FOR UNKNOWN INDICATION
     Dosage: 2 MG, UNK
     Route: 065
  8. RANITIDINE. [Suspect]
     Active Substance: RANITIDINE
     Indication: PRODUCT USED FOR UNKNOWN INDICATION
     Dosage: 50 MG
     Route: 065
  9. ERYTHROMYCIN. [Suspect]
     Active Substance: ERYTHROMYCIN
     Indication: PRODUCT USED FOR UNKNOWN INDICATION
     Dosage: 1000 MG
     Route: 065
  10. ISOSORBID DINITRATE [Suspect]
     Active Substance: ISOSORBIDE DINITRATE
     Indication: PRODUCT USED FOR UNKNOWN INDICATION
     Dosage: 1-2 MG/H
     Route: 042
  11. REMIFENTANIL [Suspect]
     Active Substance: REMIFENTANIL
     Indication: ANAESTHESIA
     Dosage: 100-500 MCG / KG / MIN
     Route: 065

REACTIONS (7)
  - Hyperhidrosis [Recovered/Resolved]
  - Malaise [Recovered/Resolved]
  - Epistaxis [Recovered/Resolved]
  - Anaphylactic reaction [Recovered/Resolved]
  - Tachycardia [Recovered/Resolved]
  - Hypertension [Recovered/Resolved]
  - Kounis syndrome [Recovered/Resolved]
